FAERS Safety Report 23701131 (Version 1)
Quarter: 2024Q2

REPORT INFORMATION
  Report Type: Spontaneous
  Country: CN (occurrence: CN)
  Receive Date: 20240403
  Receipt Date: 20240403
  Transmission Date: 20240716
  Serious: Yes (Life-Threatening, Other)
  Sender: FDA-Public Use
  Company Number: CN-Jiangsu Hansoh Pharmaceutical Co., Ltd-2155167

PATIENT
  Age: 72 Year
  Sex: Male

DRUGS (1)
  1. BORTEZOMIB [Suspect]
     Active Substance: BORTEZOMIB
     Indication: Plasma cell myeloma
     Route: 041
     Dates: start: 20240219, end: 20240219

REACTIONS (3)
  - Cardiac failure [Recovering/Resolving]
  - Chest pain [Recovering/Resolving]
  - Electrocardiogram ST segment elevation [Recovering/Resolving]

NARRATIVE: CASE EVENT DATE: 20240222
